FAERS Safety Report 8073419-8 (Version None)
Quarter: 2011Q4

REPORT INFORMATION
  Report Type: 
  Country: None (occurrence: None)
  Receive Date: 20111221
  Receipt Date: 20110822
  Transmission Date: 20120403
  Serious: Yes (Hospitalization)
  Sender: FDA-Public Use
  Company Number: PHHY2011US25425

PATIENT
  Age: 24 Year
  Sex: Male
  Weight: 71.2 kg

DRUGS (5)
  1. LOVENOX [Concomitant]
  2. DILAUDID [Concomitant]
  3. EXJADE [Suspect]
     Dosage: 1250 MG, DAILY, ORAL, 1550 MG, QD, ORAL
     Route: 048
  4. FOLIC ACID [Concomitant]
  5. HYDROXYUREA [Concomitant]

REACTIONS (1)
  - SICKLE CELL ANAEMIA WITH CRISIS [None]
